FAERS Safety Report 15810181 (Version 1)
Quarter: 2019Q1

REPORT INFORMATION
  Report Type: Spontaneous
  Country: US (occurrence: US)
  Receive Date: 20190111
  Receipt Date: 20190111
  Transmission Date: 20190417
  Serious: No
  Sender: FDA-Public Use
  Company Number: US-ROCHE-2148516

PATIENT
  Age: 59 Year
  Sex: Female
  Weight: 106.69 kg

DRUGS (7)
  1. SINGULAIR [Concomitant]
     Active Substance: MONTELUKAST SODIUM
     Route: 048
     Dates: start: 2003
  2. PREDNISONE. [Concomitant]
     Active Substance: PREDNISONE
     Route: 048
     Dates: start: 201806
  3. PREDNISONE. [Concomitant]
     Active Substance: PREDNISONE
     Indication: NEUROLOGICAL SYMPTOM
     Route: 048
     Dates: start: 20180409
  4. METHOTREXATE. [Concomitant]
     Active Substance: METHOTREXATE
     Indication: RHEUMATOID ARTHRITIS
     Route: 048
     Dates: start: 1998
  5. PRAVACHOL [Concomitant]
     Active Substance: PRAVASTATIN SODIUM
     Indication: BLOOD CHOLESTEROL INCREASED
     Route: 048
     Dates: start: 2003
  6. RITUXAN [Suspect]
     Active Substance: RITUXIMAB
     Indication: RHEUMATOID ARTHRITIS
     Dosage: ONGOING: UNKNOWN?/NOV/2017 START DATE OF SUSPECT
     Route: 042
     Dates: start: 201608
  7. PREDNISONE. [Concomitant]
     Active Substance: PREDNISONE
     Route: 048
     Dates: start: 201805

REACTIONS (7)
  - Balance disorder [Recovering/Resolving]
  - Asthenia [Recovering/Resolving]
  - Neck pain [Recovering/Resolving]
  - Hypoaesthesia [Recovering/Resolving]
  - Pain [Not Recovered/Not Resolved]
  - Dizziness [Recovering/Resolving]
  - Diplopia [Not Recovered/Not Resolved]

NARRATIVE: CASE EVENT DATE: 201804
